FAERS Safety Report 5054672-1 (Version None)
Quarter: 2006Q2

REPORT INFORMATION
  Report Type: 
  Country: None (occurrence: None)
  Receive Date: 20060614
  Receipt Date: 20060330
  Transmission Date: 20061013
  Serious: No
  Sender: FDA-Public Use
  Company Number: US200603007226

PATIENT
  Age: 53 Year
  Sex: Male

DRUGS (1)
  1. CIALIS [Suspect]
     Indication: ERECTILE DYSFUNCTION

REACTIONS (3)
  - ARTHROPOD STING [None]
  - DRUG INEFFECTIVE [None]
  - EMOTIONAL DISTRESS [None]
